FAERS Safety Report 13322628 (Version 1)
Quarter: 2017Q1

REPORT INFORMATION
  Report Type: Other
  Country: GB (occurrence: GB)
  Receive Date: 20170309
  Receipt Date: 20170309
  Transmission Date: 20170428
  Serious: Yes (Other)
  Sender: FDA-Public Use
  Company Number: GB-LUPIN PHARMACEUTICALS INC.-E2B_00007482

PATIENT
  Age: 46 Year
  Sex: Male
  Weight: 138 kg

DRUGS (2)
  1. LISINOPRIL. [Suspect]
     Active Substance: LISINOPRIL
     Dosage: 20 MG,QD,
     Route: 048
     Dates: start: 201401, end: 20150713
  2. LISINOPRIL. [Suspect]
     Active Substance: LISINOPRIL
     Indication: HYPERTENSION
     Dosage: UNKNOWN
     Route: 048
     Dates: start: 20131113, end: 201401

REACTIONS (5)
  - Dyspnoea [Unknown]
  - Sleep apnoea syndrome [Unknown]
  - Throat tightness [Unknown]
  - Eye swelling [Unknown]
  - Angioedema [Recovered/Resolved]

NARRATIVE: CASE EVENT DATE: 201502
